FAERS Safety Report 17876354 (Version 3)
Quarter: 2020Q3

REPORT INFORMATION
  Report Type: Spontaneous
  Country: US (occurrence: US)
  Receive Date: 20200609
  Receipt Date: 20200805
  Transmission Date: 20201103
  Serious: Yes (Other)
  Sender: FDA-Public Use
  Company Number: US-GILEAD-2020-0469633

PATIENT
  Age: 82 Year
  Sex: Female
  Weight: 49.4 kg

DRUGS (25)
  1. CEFTRIAXONE. [Concomitant]
     Active Substance: CEFTRIAXONE
     Dosage: 1000 MG
     Dates: start: 20200522
  2. DIPHENHYDRAMINE. [Concomitant]
     Active Substance: DIPHENHYDRAMINE
     Dosage: 25 MG
     Dates: start: 20200522
  3. REMDESIVIR. [Suspect]
     Active Substance: REMDESIVIR
     Indication: COVID-19
     Dosage: 200 MG, QD
     Route: 042
     Dates: start: 20200524, end: 20200524
  4. REMDESIVIR. [Suspect]
     Active Substance: REMDESIVIR
     Dosage: 100 MG, QD
     Route: 042
     Dates: start: 20200525, end: 20200526
  5. SODIUM POLYSTYRENE SULFONATE. [Concomitant]
     Active Substance: SODIUM POLYSTYRENE SULFONATE
     Dosage: 15 G
     Dates: start: 20200531
  6. METHYLPREDNISOLONE. [Concomitant]
     Active Substance: METHYLPREDNISOLONE
     Dosage: 50 MG
     Dates: start: 20200527, end: 20200531
  7. TOCILIZUMAB. [Concomitant]
     Active Substance: TOCILIZUMAB
     Dosage: 400 MG, ONCE
     Dates: start: 20200527, end: 20200527
  8. FUROSEMIDE. [Concomitant]
     Active Substance: FUROSEMIDE
     Dosage: 40 MG
     Dates: start: 20200526
  9. ZINC SULFATE. [Concomitant]
     Active Substance: ZINC SULFATE
     Dosage: 220 MG
     Dates: start: 20200522, end: 20200526
  10. OXYGEN. [Concomitant]
     Active Substance: OXYGEN
  11. AMIODARONE [Concomitant]
     Active Substance: AMIODARONE
     Dosage: 200 MG
     Dates: start: 20200522, end: 20200602
  12. BENZONATATE. [Concomitant]
     Active Substance: BENZONATATE
     Dosage: 100 MG PRN
     Dates: start: 20200522, end: 20200602
  13. AMLODIPINE [Concomitant]
     Active Substance: AMLODIPINE BESYLATE
     Dosage: 5 MG
     Dates: start: 20200522, end: 20200529
  14. ATORVASTATIN [Concomitant]
     Active Substance: ATORVASTATIN
     Dosage: 40 MG
     Dates: start: 20200522, end: 20200602
  15. METOPROLOL SUCCINATE. [Concomitant]
     Active Substance: METOPROLOL SUCCINATE
     Dosage: 25 MG
     Dates: start: 20200522, end: 20200602
  16. PANTOPRAZOLE [Concomitant]
     Active Substance: PANTOPRAZOLE
     Dosage: 40 MG
     Dates: start: 20200522, end: 20200602
  17. MELATONIN [Concomitant]
     Active Substance: MELATONIN
     Dosage: 3 MG PRN
     Dates: start: 20200522, end: 20200602
  18. TOCILIZUMAB. [Concomitant]
     Active Substance: TOCILIZUMAB
     Dosage: 200 MG
     Dates: start: 20200528, end: 20200528
  19. ELIQUIS [Concomitant]
     Active Substance: APIXABAN
     Dosage: 2.5 MG, BID
     Route: 048
     Dates: start: 20200522, end: 20200602
  20. ELIQUIS [Concomitant]
     Active Substance: APIXABAN
     Dosage: 2.5 MG, BID
  21. ALBUTEROL HFA [Concomitant]
     Active Substance: ALBUTEROL SULFATE
     Dosage: UNK
     Route: 055
     Dates: start: 20200522, end: 20200602
  22. AZITHROMYCIN ANHYDROUS. [Concomitant]
     Active Substance: AZITHROMYCIN ANHYDROUS
     Dosage: 500 MG
     Dates: start: 20200522
  23. NACL [Concomitant]
     Active Substance: SODIUM CHLORIDE
     Dosage: PRN
     Route: 042
     Dates: start: 20200522, end: 20200526
  24. ACETAMINOPHEN. [Concomitant]
     Active Substance: ACETAMINOPHEN
     Dosage: 650 MG PRN
     Dates: start: 20200522, end: 20200602
  25. LEVOTHYROXINE. [Concomitant]
     Active Substance: LEVOTHYROXINE
     Dosage: 112 MCG
     Dates: start: 20200522, end: 20200602

REACTIONS (1)
  - International normalised ratio increased [Recovered/Resolved]

NARRATIVE: CASE EVENT DATE: 20200527
